FAERS Safety Report 4759975-3 (Version None)
Quarter: 2005Q3

REPORT INFORMATION
  Report Type: 
  Country: None (occurrence: None)
  Receive Date: 20050902
  Receipt Date: 20050826
  Transmission Date: 20060218
  Serious: Yes (Congenital Anomaly)
  Sender: FDA-Public Use
  Company Number: FI-ABBOTT-05P-055-0309545-00

PATIENT
  Age: 4 Year
  Sex: Male

DRUGS (7)
  1. VALPROATE SODIUM [Suspect]
     Indication: DRUG EXPOSURE DURING PREGNANCY
  2. VALPROATE SODIUM [Suspect]
  3. CARBAMAZEPINE [Suspect]
     Indication: DRUG EXPOSURE DURING PREGNANCY
  4. CARBAMAZEPINE [Suspect]
  5. CARBAMAZEPINE [Suspect]
  6. VIGABATRIN [Suspect]
     Indication: DRUG EXPOSURE DURING PREGNANCY
  7. PHENYTOIN [Suspect]
     Indication: DRUG EXPOSURE DURING PREGNANCY

REACTIONS (12)
  - BONE DEVELOPMENT ABNORMAL [None]
  - CONGENITAL CARDIOVASCULAR ANOMALY [None]
  - CONGENITAL ORAL MALFORMATION [None]
  - DEVELOPMENTAL COORDINATION DISORDER [None]
  - DEXTROCARDIA [None]
  - FACIAL DYSMORPHISM [None]
  - HEAD DEFORMITY [None]
  - HYPOSPADIAS [None]
  - LIP DISORDER [None]
  - LOW SET EARS [None]
  - MILD MENTAL RETARDATION [None]
  - SIMPLE PARTIAL SEIZURES [None]
